FAERS Safety Report 10949057 (Version 1)
Quarter: 2015Q1

REPORT INFORMATION
  Report Type: Spontaneous
  Country: JP (occurrence: JP)
  Receive Date: 20150324
  Receipt Date: 20150324
  Transmission Date: 20150721
  Serious: Yes (Hospitalization, Other)
  Sender: FDA-Public Use
  Company Number: JP-ASTELLAS-2005JP001573

PATIENT
  Age: 13 Year
  Sex: Male
  Weight: 20 kg

DRUGS (3)
  1. PROGRAF [Suspect]
     Active Substance: TACROLIMUS\TACROLIMUS ANHYDROUS
     Indication: LIVER TRANSPLANT
     Route: 065
  2. UROKINASE [Concomitant]
     Active Substance: UROKINASE
     Indication: PRODUCT USED FOR UNKNOWN INDICATION
     Route: 042
  3. METHYLPREDNISOLONE. [Concomitant]
     Active Substance: METHYLPREDNISOLONE
     Indication: LIVER TRANSPLANT
     Route: 048

REACTIONS (8)
  - Viral infection [Unknown]
  - Sepsis [Recovering/Resolving]
  - Splenic vein thrombosis [Unknown]
  - Liver abscess [Recovering/Resolving]
  - Pneumonia pseudomonal [Unknown]
  - Hyperglycaemia [Unknown]
  - Hepatic infarction [Unknown]
  - Cytomegalovirus infection [Recovered/Resolved]
